FAERS Safety Report 6499868 (Version 2)
Quarter: 2013Q2

REPORT INFORMATION
  Report Type: Spontaneous
  Country: US (occurrence: US)
  Receive Date: 20071213
  Receipt Date: 20130403
  Transmission Date: 20140414
  Serious: Yes (Disabling, Other)
  Sender: FDA-Public Use
  Company Number: US-PFIZER INC-2007101421

PATIENT
  Age: 66 Year
  Sex: Female

DRUGS (2)
  1. DEPO-MEDROL [Suspect]
     Indication: NECK PAIN
     Dosage: 40 MG, UNK
     Route: 008
  2. DEPO-MEDROL [Suspect]
     Indication: MUSCULOSKELETAL PAIN

REACTIONS (1)
  - Spinal cord infarction [Recovering/Resolving]
